FAERS Safety Report 11434315 (Version 1)
Quarter: 2015Q3

REPORT INFORMATION
  Report Type: Spontaneous
  Country: US (occurrence: None)
  Receive Date: 20150828
  Receipt Date: 20150828
  Transmission Date: 20151125
  Serious: Yes (Hospitalization)
  Sender: FDA-Public Use
  Company Number: None

PATIENT
  Sex: Male

DRUGS (1)
  1. ZYTIGA [Suspect]
     Active Substance: ABIRATERONE ACETATE
     Indication: ILL-DEFINED DISORDER
     Dosage: 250MG  4 TABLETS QD  ORAL
     Route: 048
     Dates: start: 20141128, end: 201508

REACTIONS (1)
  - Pyrexia [None]
